FAERS Safety Report 11698221 (Version 1)
Quarter: 2015Q4

REPORT INFORMATION
  Report Type: Report from Study
  Country: BR (occurrence: BR)
  Receive Date: 20151104
  Receipt Date: 20151104
  Transmission Date: 20160304
  Serious: Yes (Other)
  Sender: FDA-Public Use
  Company Number: PHHY2015BR134972

PATIENT
  Sex: Female
  Weight: 54 kg

DRUGS (4)
  1. GILENYA [Suspect]
     Active Substance: FINGOLIMOD HYDROCHLORIDE
     Indication: MULTIPLE SCLEROSIS
     Dosage: 1 TABLET, QD (TREATMENT STARTED 11 MONTHS AGO)
     Route: 048
  2. GILENYA [Suspect]
     Active Substance: FINGOLIMOD HYDROCHLORIDE
     Dosage: UNK (MONDAY TO FRIDAY), APPROXIMATELY 1 MONTH AGO
     Route: 065
  3. SOMALIUM [Concomitant]
     Indication: SLEEP DISORDER
     Dosage: 1 DF, UNK
     Route: 065
  4. SERTRALINE [Concomitant]
     Active Substance: SERTRALINE HYDROCHLORIDE
     Indication: DEPRESSION
     Dosage: 1 DF, UNK
     Route: 065

REACTIONS (5)
  - White blood cell count decreased [Recovering/Resolving]
  - Dental caries [Not Recovered/Not Resolved]
  - Intentional underdose [Unknown]
  - Lymphocyte count decreased [Recovering/Resolving]
  - Blood calcium decreased [Not Recovered/Not Resolved]
